FAERS Safety Report 5238978-9 (Version None)
Quarter: 2007Q1

REPORT INFORMATION
  Report Type: 
  Country: None (occurrence: None)
  Receive Date: 20061208
  Receipt Date: 20050726
  Transmission Date: 20070707
  Serious: Yes (Other)
  Sender: FDA-Public Use
  Company Number: 2005UW08830

PATIENT
  Age: 80 Year
  Sex: Female
  Weight: 79.3 kg

DRUGS (8)
  1. CRESTOR [Suspect]
     Indication: BLOOD CHOLESTEROL INCREASED
     Dosage: 10 MG QD PO
     Route: 048
     Dates: start: 20050420
  2. CRESTOR [Suspect]
     Indication: BLOOD CHOLESTEROL INCREASED
     Dosage: 10 MG QOD PO
     Route: 048
  3. VERAPAMIL [Concomitant]
  4. SYNTHROID [Concomitant]
  5. PAXIL [Concomitant]
  6. HYDROCHLOROTHIAZIDE [Concomitant]
  7. FELDENE [Concomitant]
  8. TYLENOL EXTRA-STRENGTH [Concomitant]

REACTIONS (2)
  - HEAD DISCOMFORT [None]
  - INSOMNIA [None]
